FAERS Safety Report 4462822-0 (Version None)
Quarter: 2004Q3

REPORT INFORMATION
  Report Type: 
  Country: None (occurrence: None)
  Receive Date: 20040929
  Receipt Date: 20040913
  Transmission Date: 20050211
  Serious: No
  Sender: FDA-Public Use
  Company Number: M2004-1333

PATIENT
  Age: 36 Year
  Sex: Female

DRUGS (3)
  1. DIAZEPAM [Suspect]
  2. MELPERONE [Suspect]
     Indication: OVERDOSE
     Dosage: OVERDOSE
  3. CARBAMAZEPINE [Concomitant]

REACTIONS (4)
  - MULTIPLE DRUG OVERDOSE [None]
  - POISONING [None]
  - RESPIRATORY DEPRESSION [None]
  - SUICIDAL IDEATION [None]
